FAERS Safety Report 4953694-6 (Version None)
Quarter: 2006Q1

REPORT INFORMATION
  Report Type: 
  Country: None (occurrence: None)
  Receive Date: 20060324
  Receipt Date: 20060314
  Transmission Date: 20060701
  Serious: Yes (Other)
  Sender: FDA-Public Use
  Company Number: CG-MERCK-0603USA02422

PATIENT

DRUGS (1)
  1. STROMECTOL [Suspect]
     Route: 048

REACTIONS (1)
  - COMA [None]
